FAERS Safety Report 16053805 (Version 2)
Quarter: 2019Q2

REPORT INFORMATION
  Report Type: Spontaneous
  Country: MX (occurrence: MX)
  Receive Date: 20190308
  Receipt Date: 20190508
  Transmission Date: 20190711
  Serious: Yes (Other)
  Sender: FDA-Public Use
  Company Number: MX-GE HEALTHCARE LIFE SCIENCES-2019CSU000820

PATIENT

DRUGS (2)
  1. VISIPAQUE [Suspect]
     Active Substance: IODIXANOL
     Indication: ANGIOCARDIOGRAM
     Dosage: 22 MG, SINGLE
     Route: 042
     Dates: start: 20180212, end: 20180212
  2. VISIPAQUE [Suspect]
     Active Substance: IODIXANOL
     Indication: CONGENITAL PULMONARY VALVE ATRESIA

REACTIONS (1)
  - Hypersensitivity [Recovered/Resolved]

NARRATIVE: CASE EVENT DATE: 20180212
